FAERS Safety Report 20280450 (Version 3)
Quarter: 2023Q2

REPORT INFORMATION
  Report Type: Report from Study
  Country: JP (occurrence: JP)
  Receive Date: 20220103
  Receipt Date: 20230511
  Transmission Date: 20230722
  Serious: Yes (Death, Hospitalization)
  Sender: FDA-Public Use
  Company Number: JP-KYOWAKIRIN-2021AKK013902

PATIENT

DRUGS (23)
  1. MOGAMULIZUMAB [Suspect]
     Active Substance: MOGAMULIZUMAB
     Indication: Adult T-cell lymphoma/leukaemia
     Dosage: 1 MG/KG, 1X/2 WEEKS
     Route: 041
     Dates: start: 20191226, end: 20200109
  2. MOGAMULIZUMAB [Suspect]
     Active Substance: MOGAMULIZUMAB
     Dosage: 1 MG/KG, 1X/WEEK
     Route: 041
     Dates: start: 20191113, end: 20191219
  3. ALLELOCK [Concomitant]
     Active Substance: OLOPATADINE HYDROCHLORIDE
     Indication: Skin disorder
     Dosage: UNK
     Route: 048
     Dates: start: 20200430, end: 20200511
  4. ACETAMINOPHEN [Concomitant]
     Active Substance: ACETAMINOPHEN
     Indication: Prophylaxis
     Dosage: UNK UNK, 1X/WEEK
     Route: 065
     Dates: start: 20191113, end: 20191219
  5. ACETAMINOPHEN [Concomitant]
     Active Substance: ACETAMINOPHEN
     Dosage: UNK UNK, 1X/2 WEEKS
     Route: 065
     Dates: start: 20191226, end: 20200109
  6. DEXCHLORPHENIRAMINE MALEATE [Concomitant]
     Active Substance: DEXCHLORPHENIRAMINE MALEATE
     Indication: Prophylaxis
     Dosage: UNK UNK, 1X/WEEK
     Route: 048
     Dates: start: 20191113, end: 20191219
  7. DEXCHLORPHENIRAMINE MALEATE [Concomitant]
     Active Substance: DEXCHLORPHENIRAMINE MALEATE
     Dosage: UNK UNK, 1X/2 WEEKS
     Route: 048
     Dates: start: 20191226, end: 20200109
  8. HYDROCORTISONE [Concomitant]
     Active Substance: HYDROCORTISONE
     Indication: Prophylaxis
     Dosage: 100 MG, 1X/WEEK
     Route: 065
     Dates: start: 20191113, end: 20191219
  9. HYDROCORTISONE [Concomitant]
     Active Substance: HYDROCORTISONE
     Dosage: 100 MG, 1X/2 WEEKS
     Route: 065
     Dates: start: 20191226, end: 20200109
  10. SULFAMETHOXAZOLE\TRIMETHOPRIM [Concomitant]
     Active Substance: SULFAMETHOXAZOLE\TRIMETHOPRIM
     Indication: Infection prophylaxis
     Dosage: UNK
     Route: 048
     Dates: start: 20191115
  11. LYRICA [Concomitant]
     Active Substance: PREGABALIN
     Indication: Product used for unknown indication
     Dosage: UNK
     Route: 048
  12. ACETAMINOPHEN [Concomitant]
     Active Substance: ACETAMINOPHEN
     Indication: Product used for unknown indication
     Dosage: UNK
     Route: 048
  13. RINDERON VG [Concomitant]
     Active Substance: BETAMETHASONE VALERATE\GENTAMICIN SULFATE
     Indication: Rash
     Dosage: UNK
     Route: 061
     Dates: start: 20191226, end: 20200413
  14. BILASTINE [Concomitant]
     Active Substance: BILASTINE
     Indication: Rash
     Dosage: UNK
     Route: 048
     Dates: start: 20200213, end: 20200330
  15. PREDNISOLONE [Concomitant]
     Active Substance: PREDNISOLONE
     Indication: Rash
     Dosage: UNK
     Route: 048
     Dates: start: 20200213, end: 20200709
  16. PREDNISOLONE [Concomitant]
     Active Substance: PREDNISOLONE
     Indication: Skin disorder
  17. CLOBETASONE BUTYRATE [Concomitant]
     Active Substance: CLOBETASONE BUTYRATE
     Indication: Skin disorder
     Dosage: UNK
     Route: 061
     Dates: start: 20200421, end: 20200513
  18. HEPARINOID [Concomitant]
     Indication: Skin disorder
     Dosage: UNK
     Route: 061
     Dates: start: 20200430, end: 20200703
  19. LOCOID [Concomitant]
     Active Substance: HYDROCORTISONE BUTYRATE
     Indication: Skin disorder
     Dosage: UNK
     Route: 061
     Dates: start: 20200501, end: 20200513
  20. XYZAL [Concomitant]
     Active Substance: LEVOCETIRIZINE DIHYDROCHLORIDE
     Indication: Skin disorder
     Dosage: UNK
     Route: 048
     Dates: start: 20200503, end: 20200709
  21. PANDEL [Concomitant]
     Active Substance: HYDROCORTISONE PROBUTATE
     Indication: Skin disorder
     Dosage: UNK
     Route: 061
     Dates: start: 20200508, end: 20200612
  22. BETAMETHASONE BUTYRATE PROPIONATE [Concomitant]
     Active Substance: BETAMETHASONE BUTYRATE PROPIONATE
     Indication: Skin disorder
     Dosage: UNK
     Route: 061
     Dates: start: 20200514, end: 20200724
  23. EPINASTINE HYDROCHLORIDE [Concomitant]
     Active Substance: EPINASTINE HYDROCHLORIDE
     Indication: Skin disorder
     Dosage: UNK
     Route: 048
     Dates: start: 20200516, end: 20200709

REACTIONS (4)
  - Skin disorder [Recovering/Resolving]
  - Disease progression [Fatal]
  - Infusion related reaction [Recovered/Resolved]
  - Rash [Recovering/Resolving]

NARRATIVE: CASE EVENT DATE: 20191113
